FAERS Safety Report 7622587-8 (Version None)
Quarter: 2011Q3

REPORT INFORMATION
  Report Type: 
  Country: None (occurrence: None)
  Receive Date: 20110719
  Receipt Date: 20110719
  Transmission Date: 20111222
  Serious: Yes (Life-Threatening)
  Sender: FDA-Public Use
  Company Number: None

PATIENT
  Age: 41 Year
  Sex: Female
  Weight: 52.1637 kg

DRUGS (4)
  1. AZITHROMYCIN [Suspect]
     Indication: NAUSEA
     Dates: start: 20110303, end: 20110313
  2. AZITHROMYCIN [Suspect]
     Indication: INFECTION
     Dates: start: 20110303, end: 20110313
  3. AZITHROMYCIN [Suspect]
     Indication: NAUSEA
     Dates: start: 20110301, end: 20110304
  4. AZITHROMYCIN [Suspect]
     Indication: INFECTION
     Dates: start: 20110301, end: 20110304

REACTIONS (16)
  - MENTAL DISORDER [None]
  - FEAR [None]
  - OBSESSIVE-COMPULSIVE DISORDER [None]
  - MANIA [None]
  - SUICIDAL BEHAVIOUR [None]
  - SOCIAL AVOIDANT BEHAVIOUR [None]
  - NAUSEA [None]
  - SPEECH DISORDER [None]
  - AGITATION [None]
  - PANIC ATTACK [None]
  - AGGRESSION [None]
  - DISSOCIATION [None]
  - ANXIETY [None]
  - DISTURBANCE IN ATTENTION [None]
  - GASTROINTESTINAL DISORDER [None]
  - INSOMNIA [None]
